FAERS Safety Report 16858368 (Version 3)
Quarter: 2019Q4

REPORT INFORMATION
  Report Type: Report from Study
  Country: JP (occurrence: JP)
  Receive Date: 20190926
  Receipt Date: 20191220
  Transmission Date: 20200122
  Serious: Yes (Death, Hospitalization, Other)
  Sender: FDA-Public Use
  Company Number: JP-ASTELLAS-2018JP024680

PATIENT
  Age: 66 Year
  Sex: Male
  Weight: 63 kg

DRUGS (6)
  1. CRAVIT [Concomitant]
     Active Substance: LEVOFLOXACIN
     Indication: PROPHYLAXIS
     Dosage: 500 MG/DAY, UNKNOWN FREQ.
     Route: 048
     Dates: start: 20190111, end: 20190123
  2. ASP2215 [Suspect]
     Active Substance: GILTERITINIB
     Indication: ACUTE MYELOID LEUKAEMIA
     Route: 048
     Dates: start: 20181218, end: 20190123
  3. BAKTAR [Concomitant]
     Active Substance: SULFAMETHOXAZOLE\TRIMETHOPRIM
     Indication: PROPHYLAXIS
     Dosage: 1 DF/DAY, UNKNOWN FREQ.
     Route: 048
  4. LANSOPRAZOLE. [Concomitant]
     Active Substance: LANSOPRAZOLE
     Indication: PROPHYLAXIS
     Dosage: 15 MG/DAY, UNKNOWN FREQ.
     Route: 048
  5. AMITIZA [Concomitant]
     Active Substance: LUBIPROSTONE
     Indication: CONSTIPATION
     Dosage: 48 ?G/DAY, UNKNOWN FREQ.
     Route: 048
  6. FEBURIC [Concomitant]
     Active Substance: FEBUXOSTAT
     Indication: PROPHYLAXIS
     Dosage: 20 MG/DAY, UNKNOWN FREQ.
     Route: 048

REACTIONS (4)
  - C-reactive protein increased [Not Recovered/Not Resolved]
  - Pneumonia [Fatal]
  - Bone marrow failure [Not Recovered/Not Resolved]
  - Platelet count decreased [Not Recovered/Not Resolved]

NARRATIVE: CASE EVENT DATE: 20181221
